FAERS Safety Report 10222290 (Version 1)
Quarter: 2014Q2

REPORT INFORMATION
  Report Type: Spontaneous
  Country: DE (occurrence: DE)
  Receive Date: 20140606
  Receipt Date: 20140606
  Transmission Date: 20141212
  Serious: Yes (Hospitalization)
  Sender: FDA-Public Use
  Company Number: DE-ELI_LILLY_AND_COMPANY-DE201405009219

PATIENT
  Age: 31 Year
  Sex: Female

DRUGS (3)
  1. STRATTERA [Suspect]
     Indication: ATTENTION DEFICIT/HYPERACTIVITY DISORDER
     Dosage: 40 MG, QD
     Route: 048
     Dates: start: 20140420, end: 20140526
  2. SEROQUEL [Concomitant]
     Dosage: 50 MG, QD
     Route: 065
  3. ELONTRIL [Concomitant]
     Dosage: 300 MG, QD
     Route: 065

REACTIONS (1)
  - Psychotic disorder [Recovered/Resolved]
